FAERS Safety Report 20723898 (Version 1)
Quarter: 2022Q2

REPORT INFORMATION
  Report Type: Spontaneous
  Country: US (occurrence: US)
  Receive Date: 20220419
  Receipt Date: 20220419
  Transmission Date: 20220720
  Serious: Yes (Other)
  Sender: FDA-Public Use
  Company Number: US-AMGEN-USASP2022065648

PATIENT
  Age: 32 Year
  Sex: Male

DRUGS (3)
  1. IVABRADINE [Suspect]
     Active Substance: IVABRADINE
     Indication: Off label use
     Dosage: 5 MILLIGRAM, BID
     Route: 065
  2. IVABRADINE [Suspect]
     Active Substance: IVABRADINE
     Indication: Arrhythmia
  3. METOPROLOL SUCCINATE [Concomitant]
     Active Substance: METOPROLOL SUCCINATE
     Dosage: 400 MILLIGRAM, QD
     Route: 065

REACTIONS (10)
  - Erectile dysfunction [Unknown]
  - Polyneuropathy [Unknown]
  - Drug effective for unapproved indication [Unknown]
  - Ventricular hypertrophy [Unknown]
  - Fatigue [Unknown]
  - Paraesthesia [Unknown]
  - Presyncope [Unknown]
  - Gastrointestinal disorder [Unknown]
  - Dry mouth [Unknown]
  - Off label use [Unknown]
